FAERS Safety Report 17603178 (Version 7)
Quarter: 2025Q1

REPORT INFORMATION
  Report Type: Report from Study
  Country: CA (occurrence: CA)
  Receive Date: 20200331
  Receipt Date: 20250327
  Transmission Date: 20250408
  Serious: Yes (Hospitalization, Other)
  Sender: NOVARTIS
  Company Number: NVSC2019CA023055

PATIENT
  Age: 4 Year
  Sex: Female
  Weight: 16.7 kg

DRUGS (16)
  1. MEKINIST [Suspect]
     Active Substance: TRAMETINIB DIMETHYL SULFOXIDE
     Indication: Astrocytoma, low grade
     Route: 048
     Dates: start: 20191004, end: 20200416
  2. MEKINIST [Suspect]
     Active Substance: TRAMETINIB DIMETHYL SULFOXIDE
     Dosage: 0.35 MG, QD
     Route: 048
     Dates: start: 20191101
  3. MEKINIST [Suspect]
     Active Substance: TRAMETINIB DIMETHYL SULFOXIDE
     Dosage: 0.35 MG, QD
     Route: 048
     Dates: start: 20191106
  4. MEKINIST [Suspect]
     Active Substance: TRAMETINIB DIMETHYL SULFOXIDE
     Dosage: 0.35 MG, QD
     Route: 048
     Dates: start: 20191114
  5. MEKINIST [Suspect]
     Active Substance: TRAMETINIB DIMETHYL SULFOXIDE
     Dosage: 0.25 MG, QD
     Route: 048
     Dates: start: 20191202
  6. MEKINIST [Suspect]
     Active Substance: TRAMETINIB DIMETHYL SULFOXIDE
     Route: 048
     Dates: start: 20200109
  7. MEKINIST [Suspect]
     Active Substance: TRAMETINIB DIMETHYL SULFOXIDE
     Dosage: 0.35 MG, QD
     Route: 048
     Dates: end: 20200211
  8. MEKINIST [Suspect]
     Active Substance: TRAMETINIB DIMETHYL SULFOXIDE
     Dosage: 0.35 MG, QD
     Route: 048
     Dates: end: 20200315
  9. MEKINIST [Suspect]
     Active Substance: TRAMETINIB DIMETHYL SULFOXIDE
     Route: 048
  10. MEKINIST [Suspect]
     Active Substance: TRAMETINIB DIMETHYL SULFOXIDE
     Dosage: 0.25 MG, QD
     Route: 048
     Dates: start: 20200325
  11. MEKINIST [Suspect]
     Active Substance: TRAMETINIB DIMETHYL SULFOXIDE
     Dosage: 0.3 MG, QD
     Route: 065
     Dates: start: 20200416
  12. MEKINIST [Suspect]
     Active Substance: TRAMETINIB DIMETHYL SULFOXIDE
     Dosage: 03 MG, QD
     Route: 048
     Dates: end: 20200627
  13. MEKINIST [Suspect]
     Active Substance: TRAMETINIB DIMETHYL SULFOXIDE
     Dosage: 0.35 MG, QD
     Route: 048
     Dates: end: 20201227
  14. MEKINIST [Suspect]
     Active Substance: TRAMETINIB DIMETHYL SULFOXIDE
     Dosage: 0.35 MG, QD
     Route: 048
     Dates: start: 20210105
  15. MEKINIST [Suspect]
     Active Substance: TRAMETINIB DIMETHYL SULFOXIDE
     Route: 065
     Dates: start: 2019, end: 2021
  16. MEKINIST [Suspect]
     Active Substance: TRAMETINIB DIMETHYL SULFOXIDE
     Dosage: 0.5 MG, QD
     Route: 048
     Dates: start: 20240531, end: 20250317

REACTIONS (34)
  - Beta haemolytic streptococcal infection [Not Recovered/Not Resolved]
  - Swelling face [Not Recovered/Not Resolved]
  - Tonsillitis [Not Recovered/Not Resolved]
  - Astrocytoma, low grade [Not Recovered/Not Resolved]
  - Lymphadenopathy [Not Recovered/Not Resolved]
  - Periorbital cellulitis [Not Recovered/Not Resolved]
  - Diarrhoea [Unknown]
  - Rhinovirus infection [Recovered/Resolved]
  - Lethargy [Unknown]
  - Pyrexia [Unknown]
  - Productive cough [Unknown]
  - Malaise [Unknown]
  - White blood cell count increased [Unknown]
  - Blood lactic acid increased [Unknown]
  - Enterovirus infection [Recovered/Resolved]
  - Lip swelling [Recovering/Resolving]
  - Angular cheilitis [Recovering/Resolving]
  - Oral disorder [Recovered/Resolved]
  - Eczema [Recovering/Resolving]
  - Influenza [Recovering/Resolving]
  - Pyrexia [Recovered/Resolved]
  - Respiratory symptom [Recovering/Resolving]
  - Rash maculo-papular [Recovering/Resolving]
  - Diarrhoea [Recovered/Resolved]
  - Proctalgia [Recovered/Resolved]
  - Adenovirus test positive [Unknown]
  - Human rhinovirus test positive [Unknown]
  - Anal haemorrhage [Recovered/Resolved]
  - Anal fissure [Recovered/Resolved]
  - Stomatitis [Recovering/Resolving]
  - Oral pain [Recovering/Resolving]
  - Rash [Unknown]
  - Anaemia [Recovered/Resolved]
  - Disease recurrence [Not Recovered/Not Resolved]

NARRATIVE: CASE EVENT DATE: 20191018
